FAERS Safety Report 7642098-3 (Version None)
Quarter: 2011Q3

REPORT INFORMATION
  Report Type: 
  Country: None (occurrence: None)
  Receive Date: 20110728
  Receipt Date: 20110714
  Transmission Date: 20111222
  Serious: Yes (Hospitalization, Other)
  Sender: FDA-Public Use
  Company Number: AT-ELI_LILLY_AND_COMPANY-AT201107004063

PATIENT
  Age: 81 Year
  Sex: Female

DRUGS (2)
  1. FORTEO [Suspect]
     Indication: OSTEOPOROSIS
     Dosage: UNK, QD
     Route: 058
  2. BIOTIN [Concomitant]

REACTIONS (3)
  - RED BLOOD CELL SEDIMENTATION RATE DECREASED [None]
  - CATARACT [None]
  - OCULAR VASCULAR DISORDER [None]
